FAERS Safety Report 5722166-3 (Version None)
Quarter: 2008Q2

REPORT INFORMATION
  Report Type: 
  Country: None (occurrence: None)
  Receive Date: 20080429
  Receipt Date: 20080417
  Transmission Date: 20081010
  Serious: Yes (Other)
  Sender: FDA-Public Use
  Company Number: US-PFIZER INC-2008035424

PATIENT
  Sex: Female
  Weight: 75.8 kg

DRUGS (3)
  1. CHANTIX [Suspect]
     Indication: SMOKING CESSATION THERAPY
     Route: 048
  2. EFFEXOR [Interacting]
     Indication: BIPOLAR DISORDER
  3. APRI [Concomitant]

REACTIONS (5)
  - AGITATION [None]
  - ANXIETY [None]
  - DRUG INTERACTION [None]
  - MANIA [None]
  - UNEVALUABLE EVENT [None]
